FAERS Safety Report 18534030 (Version 1)
Quarter: 2020Q4

REPORT INFORMATION
  Report Type: Spontaneous
  Country: CN (occurrence: CN)
  Receive Date: 20201123
  Receipt Date: 20201123
  Transmission Date: 20210114
  Serious: Yes (Hospitalization)
  Sender: FDA-Public Use
  Company Number: CN-PFIZER INC-2020457572

PATIENT
  Age: 32 Year
  Sex: Female
  Weight: 42.9 kg

DRUGS (1)
  1. CELEBREX [Suspect]
     Active Substance: CELECOXIB
     Indication: PROCEDURAL PAIN
     Dosage: 0.2 G, 1X/DAY
     Route: 048
     Dates: start: 20201106, end: 20201106

REACTIONS (12)
  - Vomiting [Recovering/Resolving]
  - Abdominal distension [Recovering/Resolving]
  - Regurgitation [Recovering/Resolving]
  - Neutrophil percentage increased [Unknown]
  - Pelvic fluid collection [Unknown]
  - Nausea [Recovering/Resolving]
  - Ascites [Unknown]
  - Neutrophil count increased [Unknown]
  - White blood cell count increased [Unknown]
  - Abdominal pain [Recovering/Resolving]
  - Laryngeal discomfort [Recovering/Resolving]
  - Abdominal pain lower [Recovering/Resolving]

NARRATIVE: CASE EVENT DATE: 20201106
